FAERS Safety Report 4331358-X (Version None)
Quarter: 2004Q1

REPORT INFORMATION
  Report Type: 
  Country: None (occurrence: None)
  Receive Date: 20040329
  Receipt Date: 20040316
  Transmission Date: 20041129
  Serious: Yes (Other)
  Sender: FDA-Public Use
  Company Number: US-JNJFOC-20031102883

PATIENT
  Age: 65 Year
  Sex: Female

DRUGS (14)
  1. LEVAQUIN [Suspect]
     Indication: INFECTION
     Dosage: 500 MG, 1 IN 24 HOUR, INTRAVENOUS
     Route: 042
     Dates: start: 20031104, end: 20031110
  2. BETAPACE [Suspect]
     Dosage: 80 MG, ORAL
     Route: 048
     Dates: start: 20031103, end: 20031110
  3. NORVASC [Concomitant]
  4. ALTACE [Concomitant]
  5. REGLAN [Concomitant]
  6. TYLENOL [Concomitant]
  7. AMIODARONE HCL [Concomitant]
  8. PHENERGAN [Concomitant]
  9. NUBAIN [Concomitant]
  10. IMMODIUM (LOPERAMIDE HYDROCHLORIDE) [Concomitant]
  11. LASIX [Concomitant]
  12. XANAX [Concomitant]
  13. PROTONIX [Concomitant]
  14. ANZEMET (DOLASETRON MESILATE) [Concomitant]

REACTIONS (2)
  - ELECTROCARDIOGRAM QT PROLONGED [None]
  - VENTRICULAR TACHYCARDIA [None]
